FAERS Safety Report 23630656 (Version 1)
Quarter: 2024Q1

REPORT INFORMATION
  Report Type: Spontaneous
  Country: ZA (occurrence: None)
  Receive Date: 20240314
  Receipt Date: 20240314
  Transmission Date: 20240410
  Serious: Yes (Other)
  Sender: FDA-Public Use
  Company Number: ZA-ROCHE-3525894

PATIENT
  Age: 65 Year

DRUGS (1)
  1. PERJETA [Suspect]
     Active Substance: PERTUZUMAB
     Indication: Adjuvant therapy
     Dosage: HAD 5 CYCLES, RECEIVED LAST TREATMENT ON 27/12/23.
     Route: 065

REACTIONS (1)
  - Disease progression [Unknown]
